FAERS Safety Report 11150740 (Version 2)
Quarter: 2015Q3

REPORT INFORMATION
  Report Type: Spontaneous
  Country: DE (occurrence: DE)
  Receive Date: 20150601
  Receipt Date: 20150707
  Transmission Date: 20151125
  Serious: Yes (Other)
  Sender: FDA-Public Use
  Company Number: DE-AMGEN-DEUSP2015051734

PATIENT
  Age: 40 Year
  Sex: Female
  Weight: 72 kg

DRUGS (6)
  1. FOSAPREPITANT [Concomitant]
     Active Substance: FOSAPREPITANT
     Indication: SUPPORTIVE CARE
     Dosage: 150 MG, 2-WEEKLY
     Route: 042
     Dates: start: 20150512, end: 20150623
  2. NEULASTA [Suspect]
     Active Substance: PEGFILGRASTIM
     Indication: BREAST CANCER
     Dosage: 6 MG, 2 WEEKS
     Route: 058
     Dates: start: 20150513
  3. CYCLOPHOSPHAMIDE. [Concomitant]
     Active Substance: CYCLOPHOSPHAMIDE
     Indication: SUPPORTIVE CARE
     Dosage: 1050 MG, 2-WEEKLY
     Route: 042
     Dates: start: 20150512, end: 20150623
  4. EPIRUBICIN [Concomitant]
     Active Substance: EPIRUBICIN
     Indication: SUPPORTIVE CARE
     Dosage: 158 MG, 2-WEEKLY
     Route: 042
     Dates: start: 20150512, end: 20150623
  5. DEXAMETHASONE. [Concomitant]
     Active Substance: DEXAMETHASONE
     Indication: SUPPORTIVE CARE
     Dosage: 16 MG, 2-WEEKLY
     Route: 042
     Dates: start: 20150512, end: 20150623
  6. ONDASETRON                         /00955301/ [Concomitant]
     Indication: SUPPORTIVE CARE
     Dosage: 8 MG, 2-WEEKLY
     Route: 042
     Dates: start: 20150512, end: 20150623

REACTIONS (3)
  - Drug effect delayed [Recovered/Resolved]
  - Drug effect increased [Recovered/Resolved]
  - Leukopenia [Recovered/Resolved]

NARRATIVE: CASE EVENT DATE: 20150519
